FAERS Safety Report 6905255-7 (Version None)
Quarter: 2010Q3

REPORT INFORMATION
  Report Type: 
  Country: None (occurrence: None)
  Receive Date: 20100804
  Receipt Date: 20100727
  Transmission Date: 20110219
  Serious: Yes (Other)
  Sender: FDA-Public Use
  Company Number: US-JNJFOC-20100708960

PATIENT
  Sex: Male
  Weight: 94.35 kg

DRUGS (8)
  1. DURAGESIC-100 [Suspect]
     Indication: NERVE INJURY
     Route: 062
  2. PLAVIX [Concomitant]
     Indication: ANTICOAGULANT THERAPY
     Route: 048
  3. LIPITOR [Concomitant]
     Indication: BLOOD CHOLESTEROL INCREASED
     Route: 048
  4. ADVAIR DISKUS 100/50 [Concomitant]
     Indication: LUNG DISORDER
     Route: 055
  5. WELLBUTRIN [Concomitant]
     Indication: SEDATIVE THERAPY
     Route: 048
  6. WELLBUTRIN [Concomitant]
     Indication: SMOKING CESSATION THERAPY
     Route: 048
  7. XANAX [Concomitant]
     Indication: POST-TRAUMATIC STRESS DISORDER
     Dosage: ONE/TWO A DAY
     Route: 048
  8. XANAX [Concomitant]
     Indication: NERVOUSNESS
     Dosage: ONE/TWO A DAY
     Route: 048

REACTIONS (2)
  - DRUG SCREEN POSITIVE [None]
  - EMPHYSEMA [None]
